FAERS Safety Report 6701817-0 (Version None)
Quarter: 2010Q2

REPORT INFORMATION
  Report Type: 
  Country: None (occurrence: None)
  Receive Date: 20100429
  Receipt Date: 20100423
  Transmission Date: 20101027
  Serious: Yes (Death, Life-Threatening, Hospitalization)
  Sender: FDA-Public Use
  Company Number: JP-BAYER-200912992BYL

PATIENT
  Age: 54 Year
  Sex: Male
  Weight: 54 kg

DRUGS (21)
  1. NEXAVAR [Suspect]
     Indication: HEPATIC NEOPLASM MALIGNANT
     Dosage: UNIT DOSE: 200 MG
     Route: 048
     Dates: start: 20091005, end: 20091006
  2. NEXAVAR [Suspect]
     Dosage: UNIT DOSE: 200 MG
     Route: 048
     Dates: start: 20090915, end: 20091004
  3. NEXAVAR [Suspect]
     Dosage: UNIT DOSE: 200 MG
     Route: 048
     Dates: start: 20090909, end: 20090910
  4. NEXAVAR [Suspect]
     Dosage: TOTAL DAILY DOSE: 800 MG  UNIT DOSE: 200 MG
     Route: 048
     Dates: start: 20090805, end: 20090819
  5. NEXAVAR [Suspect]
     Dosage: UNIT DOSE: 200 MG
     Route: 048
     Dates: start: 20090910, end: 20090914
  6. GASTER D [Concomitant]
     Dosage: TOTAL DAILY DOSE: 40 MG  UNIT DOSE: 20 MG
     Route: 048
     Dates: start: 20090805
  7. VOLTAREN [Concomitant]
     Dosage: TOTAL DAILY DOSE: 50 MG  UNIT DOSE: 25 MG
     Route: 048
     Dates: start: 20090805
  8. KERATINAMIN [Concomitant]
     Indication: PROPHYLAXIS
     Route: 061
     Dates: start: 20090805
  9. LASIX [Concomitant]
     Dosage: UNIT DOSE: 20 MG
     Route: 048
     Dates: start: 20090923, end: 20090924
  10. LASIX [Concomitant]
     Dosage: TOTAL DAILY DOSE: 20 MG  UNIT DOSE: 20 MG
     Route: 048
     Dates: start: 20090805, end: 20090922
  11. LASIX [Concomitant]
     Dosage: TOTAL DAILY DOSE: 20 MG  UNIT DOSE: 20 MG
     Route: 048
     Dates: start: 20090925
  12. ALDACTONE [Concomitant]
     Dosage: TOTAL DAILY DOSE: 25 MG  UNIT DOSE: 25 MG
     Route: 048
     Dates: start: 20090805
  13. HALCION [Concomitant]
     Dosage: UNIT DOSE: 0.25 MG
     Route: 048
  14. PARIET [Concomitant]
     Dosage: UNIT DOSE: 10 MG
     Route: 048
  15. MYSLEE [Concomitant]
     Dosage: UNIT DOSE: 10 MG
     Route: 048
     Dates: start: 20090916, end: 20090916
  16. MYSLEE [Concomitant]
     Dosage: UNIT DOSE: 10 MG
     Route: 048
     Dates: start: 20090915, end: 20090915
  17. VOLTAREN [Concomitant]
     Dosage: UNIT DOSE: 25 MG
     Route: 054
     Dates: start: 20090915, end: 20090915
  18. ASTOMIN [Concomitant]
     Dosage: UNIT DOSE: 10 MG
     Route: 048
     Dates: start: 20090918, end: 20091014
  19. ARGAMATE [Concomitant]
     Indication: HYPERKALAEMIA
     Dosage: UNIT DOSE: 25 G
     Route: 048
     Dates: start: 20090928, end: 20091022
  20. FOSMICIN [Concomitant]
     Indication: PNEUMONIA
     Dosage: UNIT DOSE: 500 MG
     Route: 048
     Dates: start: 20091001, end: 20091022
  21. MOHRUS TAPE [Concomitant]
     Indication: CHEST PAIN
     Route: 062
     Dates: start: 20091002

REACTIONS (11)
  - ABDOMINAL PAIN [None]
  - CHEST PAIN [None]
  - COUGH [None]
  - DIARRHOEA [None]
  - HEPATIC NEOPLASM MALIGNANT [None]
  - HYPERKALAEMIA [None]
  - INSOMNIA [None]
  - PLEURAL EFFUSION [None]
  - PNEUMONIA [None]
  - PYREXIA [None]
  - RASH [None]
